FAERS Safety Report 5300436-0 (Version None)
Quarter: 2007Q2

REPORT INFORMATION
  Report Type: 
  Country: None (occurrence: None)
  Receive Date: 20070413
  Receipt Date: 20070413
  Transmission Date: 20071010
  Serious: Yes (Life-Threatening, Hospitalization)
  Sender: FDA-Public Use
  Company Number: None

PATIENT
  Age: 40 Year
  Sex: Male
  Weight: 83.6 kg

DRUGS (3)
  1. PIROXICAM [Suspect]
     Indication: BACK PAIN
     Dosage: 40MG DAILY PO
     Route: 048
     Dates: start: 20061001, end: 20070201
  2. CITALOPRAM HYDROBROMIDE [Concomitant]
  3. HYDROCODONE 5/ACETAMINOPHEN 500MG [Concomitant]

REACTIONS (1)
  - DUODENAL ULCER [None]
